FAERS Safety Report 21302780 (Version 1)
Quarter: 2022Q3

REPORT INFORMATION
  Report Type: Spontaneous
  Country: GB (occurrence: GB)
  Receive Date: 20220907
  Receipt Date: 20220907
  Transmission Date: 20221026
  Serious: Yes (Other)
  Sender: FDA-Public Use
  Company Number: GB-MHRA-MED-202209021914431600-CTKFV

PATIENT
  Age: 50 Year
  Sex: Female
  Weight: 90 kg

DRUGS (1)
  1. DOXYCYCLINE [Suspect]
     Active Substance: DOXYCYCLINE
     Indication: Furuncle
     Dosage: 100 MILLIGRAM, BID (100MG BD)
     Route: 065
     Dates: start: 20220830, end: 20220902

REACTIONS (3)
  - Odynophagia [Not Recovered/Not Resolved]
  - Chest pain [Not Recovered/Not Resolved]
  - Product label issue [Unknown]

NARRATIVE: CASE EVENT DATE: 20220830
